FAERS Safety Report 13471610 (Version 2)
Quarter: 2017Q2

REPORT INFORMATION
  Report Type: Report from Study
  Country: US (occurrence: US)
  Receive Date: 20170424
  Receipt Date: 20170426
  Transmission Date: 20170830
  Serious: Yes (Other)
  Sender: FDA-Public Use
  Company Number: US-ELI_LILLY_AND_COMPANY-US201704008311

PATIENT
  Age: 62 Year
  Sex: Female

DRUGS (3)
  1. FORTEO [Suspect]
     Active Substance: TERIPARATIDE
     Indication: OSTEOPOROSIS
     Dosage: UNK, UNKNOWN
     Route: 065
  2. BYSTOLIC [Suspect]
     Active Substance: NEBIVOLOL HYDROCHLORIDE
     Indication: PALPITATIONS
     Dosage: UNK, UNKNOWN
     Route: 065
  3. FORTEO [Suspect]
     Active Substance: TERIPARATIDE
     Dosage: UNK, UNKNOWN
     Route: 065
     Dates: start: 20170416

REACTIONS (13)
  - Underdose [Recovering/Resolving]
  - Angina pectoris [Unknown]
  - Drug dose omission [Unknown]
  - Injection site pain [Unknown]
  - Incorrect product storage [Recovering/Resolving]
  - Injection site pain [Recovering/Resolving]
  - Drug dose omission [Recovering/Resolving]
  - Memory impairment [Unknown]
  - Heart rate decreased [Unknown]
  - Arteriosclerosis [Unknown]
  - Arteriospasm coronary [Unknown]
  - Palpitations [Unknown]
  - Ventricular extrasystoles [Unknown]

NARRATIVE: CASE EVENT DATE: 2016
